FAERS Safety Report 7273336-7 (Version None)
Quarter: 2011Q1

REPORT INFORMATION
  Report Type: 
  Country: None (occurrence: None)
  Receive Date: 20110203
  Receipt Date: 20101025
  Transmission Date: 20110831
  Serious: No
  Sender: FDA-Public Use
  Company Number: US-ABBOTT-10P-163-0681387-00

PATIENT
  Sex: Male
  Weight: 104.42 kg

DRUGS (6)
  1. METOPROLOL [Concomitant]
     Indication: HYPERTENSION
  2. FLECAINIDE [Concomitant]
     Indication: ARRHYTHMIA
  3. DILTIAZEM [Concomitant]
     Indication: HYPERTENSION
  4. SYNTHROID [Suspect]
  5. SYNTHROID [Suspect]
     Indication: HYPOTHYROIDISM
     Dates: start: 20020701
  6. SYNTHROID [Suspect]
     Indication: HYPOTHYROIDISM

REACTIONS (4)
  - HEADACHE [None]
  - DIZZINESS [None]
  - BLOOD THYROID STIMULATING HORMONE INCREASED [None]
  - FATIGUE [None]
